FAERS Safety Report 22649184 (Version 1)
Quarter: 2023Q2

REPORT INFORMATION
  Report Type: Spontaneous
  Country: US (occurrence: US)
  Receive Date: 20230628
  Receipt Date: 20230628
  Transmission Date: 20230722
  Serious: No
  Sender: FDA-Public Use
  Company Number: US-BAUSCH-BL-2023-009667

PATIENT
  Age: 45 Year
  Sex: Female

DRUGS (1)
  1. TRULANCE [Suspect]
     Active Substance: PLECANATIDE
     Indication: Product used for unknown indication
     Route: 065

REACTIONS (4)
  - Abdominal distension [Unknown]
  - Therapeutic product effect incomplete [Unknown]
  - Product quality issue [Unknown]
  - Intentional product use issue [Unknown]
